FAERS Safety Report 4982466-1 (Version None)
Quarter: 2006Q2

REPORT INFORMATION
  Report Type: 
  Country: None (occurrence: None)
  Receive Date: 20060421
  Receipt Date: 20060412
  Transmission Date: 20061013
  Serious: Yes (Other)
  Sender: FDA-Public Use
  Company Number: 2006050461

PATIENT
  Age: 22 Year
  Sex: Female
  Weight: 87.9978 kg

DRUGS (5)
  1. BENADRYL [Suspect]
     Indication: PHARYNGOLARYNGEAL PAIN
     Dosage: 2 KAPSEALS EVERY 6 HOURS, ORAL
     Route: 048
     Dates: start: 20060408, end: 20060411
  2. DIPHENHYDRAMINE HCL [Suspect]
     Indication: PHARYNGOLARYNGEAL PAIN
     Dosage: 50 MG 3 TIMES DAILY, ORAL
     Route: 048
     Dates: start: 20060301
  3. LORAZEPAM [Concomitant]
  4. CLARITHROMYCIN [Concomitant]
  5. IBUPROFEN [Concomitant]

REACTIONS (5)
  - CONDITION AGGRAVATED [None]
  - DYSPNOEA [None]
  - HEART RATE INCREASED [None]
  - LARYNGOSPASM [None]
  - PHARYNGOLARYNGEAL PAIN [None]
